FAERS Safety Report 16759829 (Version 1)
Quarter: 2019Q3

REPORT INFORMATION
  Report Type: Spontaneous
  Country: BR (occurrence: BR)
  Receive Date: 20190830
  Receipt Date: 20190830
  Transmission Date: 20191005
  Serious: Yes (Hospitalization)
  Sender: FDA-Public Use
  Company Number: BR-PFIZER INC-2019367201

PATIENT
  Sex: Female

DRUGS (4)
  1. FRONTAL [Suspect]
     Active Substance: ALPRAZOLAM
     Indication: GENERALISED ANXIETY DISORDER
     Dosage: 1.5 MG, UNK
  2. QUETIAPINE. [Suspect]
     Active Substance: QUETIAPINE
     Dosage: 150 (NO UNITS PROVIDED), UNK
  3. RAZAPINA [Suspect]
     Active Substance: MIRTAZAPINE
     Dosage: 45 (NO UNITS PROVIDED), UNK
  4. ANAFRANIL [Suspect]
     Active Substance: CLOMIPRAMINE HYDROCHLORIDE
     Dosage: 75 (NO UNITS PROVIDED), UNK

REACTIONS (2)
  - Blood stem cell transplant failure [Unknown]
  - Multiple drug therapy [Unknown]
